FAERS Safety Report 8261060-3 (Version None)
Quarter: 2012Q2

REPORT INFORMATION
  Report Type: 
  Country: None (occurrence: None)
  Receive Date: 20120405
  Receipt Date: 20120329
  Transmission Date: 20120825
  Serious: Yes (Other)
  Sender: FDA-Public Use
  Company Number: PHHY2012TR026252

PATIENT
  Age: 76 Year
  Sex: Female

DRUGS (1)
  1. ZOLEDRONOC ACID [Suspect]
     Indication: OSTEOPOROSIS
     Route: 042
     Dates: start: 20120326

REACTIONS (4)
  - HYPOKALAEMIA [None]
  - HYPOCALCAEMIA [None]
  - INCORRECT DOSE ADMINISTERED [None]
  - MUSCLE CONTRACTIONS INVOLUNTARY [None]
